FAERS Safety Report 5831799-5 (Version None)
Quarter: 2008Q3

REPORT INFORMATION
  Report Type: 
  Country: None (occurrence: None)
  Receive Date: 20080804
  Receipt Date: 20080731
  Transmission Date: 20090109
  Serious: Yes (Other)
  Sender: FDA-Public Use
  Company Number: US-SP-2008-00023

PATIENT
  Age: 31 Year
  Sex: Male

DRUGS (2)
  1. IMOVAX RABIES I.D. [Suspect]
     Indication: ACCIDENTAL EXPOSURE
     Route: 065
     Dates: start: 19960101
  2. IMMUNOGLOBULIN HUMAN ANTIRABIES [Suspect]
     Indication: ACCIDENTAL EXPOSURE
     Route: 065

REACTIONS (1)
  - ASTHMA [None]
